FAERS Safety Report 20162104 (Version 16)
Quarter: 2024Q4

REPORT INFORMATION
  Report Type: Report from Study
  Country: US (occurrence: US)
  Receive Date: 20211208
  Receipt Date: 20241122
  Transmission Date: 20250114
  Serious: Yes (Hospitalization, Other)
  Sender: TAKEDA
  Company Number: US-TAKEDA-US202029576

PATIENT
  Age: 64 Year
  Sex: Female

DRUGS (3)
  1. HUMAN IMMUNOGLOBULIN G [Suspect]
     Active Substance: HUMAN IMMUNOGLOBULIN G
     Indication: Primary immunodeficiency syndrome
     Dosage: 12 GRAM, 1/WEEK
  2. HUMAN IMMUNOGLOBULIN G [Suspect]
     Active Substance: HUMAN IMMUNOGLOBULIN G
     Indication: Immunodeficiency common variable
     Dosage: UNK
  3. COVID-19 VACCINE NOS [Suspect]
     Active Substance: COVID-19 VACCINE
     Indication: COVID-19 immunisation
     Dosage: UNK

REACTIONS (33)
  - Polyp [Unknown]
  - Fluid retention [Not Recovered/Not Resolved]
  - Hepatic cirrhosis [Unknown]
  - Internal haemorrhage [Unknown]
  - Rheumatoid arthritis [Unknown]
  - Haemoglobin decreased [Not Recovered/Not Resolved]
  - Pneumonia [Not Recovered/Not Resolved]
  - Gastric infection [Unknown]
  - Kidney infection [Unknown]
  - Cystitis [Unknown]
  - Intra-abdominal fluid collection [Unknown]
  - Chronic hepatic failure [Unknown]
  - Palpitations [Unknown]
  - Splenomegaly [Unknown]
  - Pulmonary mass [Unknown]
  - Seasonal allergy [Unknown]
  - Lung opacity [Unknown]
  - Rib fracture [Unknown]
  - Weight decreased [Unknown]
  - Gait disturbance [Unknown]
  - Back disorder [Unknown]
  - Oxygen saturation decreased [Not Recovered/Not Resolved]
  - Feeling cold [Unknown]
  - Asthenia [Unknown]
  - Malaise [Unknown]
  - Cough [Not Recovered/Not Resolved]
  - Pain [Unknown]
  - Dyspnoea [Unknown]
  - Pruritus [Unknown]
  - Fatigue [Unknown]
  - Multiple allergies [Unknown]
  - Dysphonia [Unknown]
  - Asthma [Unknown]

NARRATIVE: CASE EVENT DATE: 20211201
